FAERS Safety Report 22222212 (Version 1)
Quarter: 2023Q2

REPORT INFORMATION
  Report Type: Spontaneous
  Country: AU (occurrence: AU)
  Receive Date: 20230418
  Receipt Date: 20230418
  Transmission Date: 20230722
  Serious: Yes (Other)
  Sender: FDA-Public Use
  Company Number: AU-002147023-NVSC2023AU069147

PATIENT
  Sex: Female

DRUGS (1)
  1. XOLAIR [Suspect]
     Active Substance: OMALIZUMAB
     Indication: Product used for unknown indication
     Dosage: 2 DOSAGE FORM (2 PENS), STRENGTH: 150 MG
     Route: 065

REACTIONS (2)
  - Immunodeficiency [Unknown]
  - Product temperature excursion issue [Unknown]
